FAERS Safety Report 8169818-6 (Version None)
Quarter: 2012Q1

REPORT INFORMATION
  Report Type: 
  Country: None (occurrence: None)
  Receive Date: 20120222
  Receipt Date: 20120214
  Transmission Date: 20120608
  Serious: Yes (Hospitalization)
  Sender: FDA-Public Use
  Company Number: AUR-APL-2012-00979

PATIENT
  Age: 79 Year
  Sex: Female

DRUGS (10)
  1. MODURETIC 5-50 [Concomitant]
  2. KARVEA (IRBESARTAN) [Concomitant]
  3. MONOKET [Concomitant]
  4. AMOXICILLIN [Suspect]
     Indication: HIDRADENITIS
     Dosage: (2 DOSAGE FORMS, 1 D), ORAL
     Route: 048
     Dates: start: 20080214, end: 20080416
  5. PREVEX (PARAFFIN SOFT) [Concomitant]
  6. LANOXIN [Concomitant]
  7. REPAGLINIDE [Concomitant]
  8. ASCRIPTIN (ASCRIPTIN) [Concomitant]
  9. EUTIROX (LEVOTHYROXINE) [Concomitant]
  10. ALLOPURINOL [Concomitant]

REACTIONS (4)
  - RASH ERYTHEMATOUS [None]
  - DRUG ERUPTION [None]
  - RASH PAPULAR [None]
  - PRURITUS GENERALISED [None]
